FAERS Safety Report 10632571 (Version 1)
Quarter: 2014Q4

REPORT INFORMATION
  Report Type: Spontaneous
  Country: JP (occurrence: None)
  Receive Date: 20141203
  Receipt Date: 20141203
  Transmission Date: 20150529
  Serious: Yes (Hospitalization, Other)
  Sender: FDA-Public Use
  Company Number: A201409036

PATIENT
  Age: 43 Year
  Sex: Male

DRUGS (3)
  1. TIVICAY [Suspect]
     Active Substance: DOLUTEGRAVIR SODIUM
     Route: 048
     Dates: start: 20140521, end: 20140805
  2. ZYLORIC (ALLOPURINOL) TABLET [Suspect]
     Active Substance: ALLOPURINOL
     Route: 048
     Dates: start: 20110606, end: 20140805
  3. TRUVADA (EMTRICITABINE + TENOFOVIR DISOPROXIL FUMARATE) [Concomitant]

REACTIONS (5)
  - Stevens-Johnson syndrome [None]
  - Pyrexia [None]
  - Erythema [None]
  - Rash generalised [None]
  - Oral mucosal eruption [None]

NARRATIVE: CASE EVENT DATE: 20140805
